FAERS Safety Report 13229907 (Version 1)
Quarter: 2017Q1

REPORT INFORMATION
  Report Type: Spontaneous
  Country: US (occurrence: US)
  Receive Date: 20170213
  Receipt Date: 20170213
  Transmission Date: 20170428
  Serious: No
  Sender: FDA-Public Use
  Company Number: None

PATIENT
  Age: 37 Year
  Sex: Male

DRUGS (6)
  1. PRIMIDONE. [Concomitant]
     Active Substance: PRIMIDONE
  2. AMPYRA [Suspect]
     Active Substance: DALFAMPRIDINE
     Indication: MULTIPLE SCLEROSIS
     Route: 048
     Dates: start: 201510
  3. SILDENAFIL. [Concomitant]
     Active Substance: SILDENAFIL
  4. RITUXAN [Concomitant]
     Active Substance: RITUXIMAB
  5. BACLOFEN. [Concomitant]
     Active Substance: BACLOFEN
  6. BUPROPION. [Concomitant]
     Active Substance: BUPROPION

REACTIONS (12)
  - Abdominal pain [None]
  - Diarrhoea [None]
  - Blood chloride increased [None]
  - Chills [None]
  - Nausea [None]
  - Eosinophil count decreased [None]
  - Vomiting [None]
  - Blood calcium decreased [None]
  - Blood potassium decreased [None]
  - Neutrophil count increased [None]
  - Laboratory test abnormal [None]
  - Protein total increased [None]

NARRATIVE: CASE EVENT DATE: 20170103
